FAERS Safety Report 8161542-9 (Version None)
Quarter: 2012Q1

REPORT INFORMATION
  Report Type: 
  Country: None (occurrence: None)
  Receive Date: 20120222
  Receipt Date: 20120222
  Transmission Date: 20120608
  Serious: Yes (Other)
  Sender: FDA-Public Use
  Company Number: None

PATIENT
  Sex: Male
  Weight: 91.6266 kg

DRUGS (1)
  1. SUBOXONE [Suspect]
     Indication: DRUG ABUSER
     Dosage: 6 MG SUBLINGUAL 1/DAY ORAL (UNDER TONGUE)
     Route: 048
     Dates: start: 20120124

REACTIONS (2)
  - MOUTH ULCERATION [None]
  - TONGUE ULCERATION [None]
